FAERS Safety Report 6653596-3 (Version None)
Quarter: 2010Q1

REPORT INFORMATION
  Report Type: 
  Country: None (occurrence: None)
  Receive Date: 20100326
  Receipt Date: 20100319
  Transmission Date: 20100710
  Serious: Yes (Life-Threatening, Hospitalization)
  Sender: FDA-Public Use
  Company Number: FR-ABBOTT-10P-056-0633482-00

PATIENT
  Age: 21 Year
  Sex: Female

DRUGS (2)
  1. DEPAKENE [Suspect]
     Indication: EPILEPSY
     Dates: start: 20070101, end: 20100213
  2. LAMICTAL CD [Suspect]
     Indication: EPILEPSY
     Dates: start: 20100119, end: 20100212

REACTIONS (1)
  - TOXIC EPIDERMAL NECROLYSIS [None]
